FAERS Safety Report 8143493-9 (Version None)
Quarter: 2012Q1

REPORT INFORMATION
  Report Type: 
  Country: None (occurrence: None)
  Receive Date: 20120217
  Receipt Date: 20120203
  Transmission Date: 20120608
  Serious: Yes (Death, Hospitalization, Other)
  Sender: FDA-Public Use
  Company Number: GB-RANBAXY-2011RR-50416

PATIENT
  Age: 14 Year
  Sex: Male

DRUGS (1)
  1. MINOCYCLINE HCL [Suspect]
     Indication: ACNE
     Dosage: UNK
     Route: 048

REACTIONS (7)
  - DYSPNOEA [None]
  - TACHYPNOEA [None]
  - SHOCK [None]
  - LACTIC ACIDOSIS [None]
  - IDIOSYNCRATIC DRUG REACTION [None]
  - HYPOXIA [None]
  - TACHYCARDIA [None]
